FAERS Safety Report 12927941 (Version 1)
Quarter: 2016Q4

REPORT INFORMATION
  Report Type: Spontaneous
  Country: RU (occurrence: RU)
  Receive Date: 20161110
  Receipt Date: 20161110
  Transmission Date: 20170207
  Serious: Yes (Other)
  Sender: FDA-Public Use
  Company Number: RU-ROCHE-1852119

PATIENT
  Age: 11 Year
  Sex: Male

DRUGS (2)
  1. ACTEMRA [Suspect]
     Active Substance: TOCILIZUMAB
     Route: 042
     Dates: start: 201604
  2. ACTEMRA [Suspect]
     Active Substance: TOCILIZUMAB
     Indication: JUVENILE IDIOPATHIC ARTHRITIS
     Route: 042
     Dates: start: 201510

REACTIONS (8)
  - Asthenia [Unknown]
  - Sleep disorder [Unknown]
  - Bronchitis [Recovering/Resolving]
  - Diplopia [Not Recovered/Not Resolved]
  - Musculoskeletal stiffness [Recovering/Resolving]
  - Arachnoiditis [Not Recovered/Not Resolved]
  - Leukocytosis [Unknown]
  - Intracranial pressure increased [Not Recovered/Not Resolved]
